FAERS Safety Report 11500653 (Version 3)
Quarter: 2015Q4

REPORT INFORMATION
  Report Type: Spontaneous
  Country: JP (occurrence: JP)
  Receive Date: 20150914
  Receipt Date: 20151030
  Transmission Date: 20160304
  Serious: Yes (Hospitalization)
  Sender: FDA-Public Use
  Company Number: JP-ELI_LILLY_AND_COMPANY-JP201509003736

PATIENT
  Age: 71 Year
  Sex: Male
  Weight: 53.5 kg

DRUGS (8)
  1. REBAMIPIDE [Concomitant]
     Active Substance: REBAMIPIDE
     Indication: CANCER PAIN
     Dosage: 100 MG, TID
     Route: 048
     Dates: start: 20140609
  2. CYRAMZA [Suspect]
     Active Substance: RAMUCIRUMAB
     Indication: ADENOCARCINOMA GASTRIC
     Dosage: 440 MG, OTHER
     Route: 042
     Dates: start: 20150713, end: 20150831
  3. RESTAMIN                           /00000401/ [Concomitant]
     Dosage: 50 MG, OTHER
     Route: 048
     Dates: start: 20150713, end: 20150831
  4. AZUNOL                             /00317302/ [Concomitant]
     Indication: STOMATITIS
     Dosage: UNK
     Route: 048
     Dates: start: 20140709
  5. PACLITAXEL. [Suspect]
     Active Substance: PACLITAXEL
     Indication: ADENOCARCINOMA GASTRIC
     Dosage: 120 MG, OTHER
     Route: 042
     Dates: start: 20150713, end: 20150831
  6. DEXALTIN [Concomitant]
     Active Substance: DEXAMETHASONE
     Indication: STOMATITIS
     Dosage: UNK
     Route: 062
     Dates: start: 20140709
  7. LOBU [Concomitant]
     Active Substance: LOBUCAVIR
     Indication: CANCER PAIN
     Dosage: 60 MG, TID
     Route: 048
     Dates: start: 20140609
  8. MAGMITT [Concomitant]
     Active Substance: MAGNESIUM OXIDE
     Indication: CONSTIPATION
     Dosage: 330 MG, TID
     Route: 048
     Dates: start: 20150321

REACTIONS (2)
  - Interstitial lung disease [Recovering/Resolving]
  - Stomatitis [Recovering/Resolving]

NARRATIVE: CASE EVENT DATE: 20150901
